FAERS Safety Report 6807846-0 (Version None)
Quarter: 2010Q2

REPORT INFORMATION
  Report Type: 
  Country: None (occurrence: None)
  Receive Date: 20100629
  Receipt Date: 20090115
  Transmission Date: 20101027
  Serious: No
  Sender: FDA-Public Use
  Company Number: US-PFIZER INC-2008100617

PATIENT
  Sex: Male
  Weight: 120 kg

DRUGS (10)
  1. TIKOSYN [Suspect]
     Indication: ATRIAL FIBRILLATION
     Dosage: 500 UG, 2X/DAY
     Route: 048
     Dates: start: 20080911, end: 20081125
  2. ALTACE [Concomitant]
  3. NIACIN [Concomitant]
  4. MELOXICAM [Concomitant]
  5. METFORMIN HCL [Concomitant]
  6. SPIRONOLACTONE [Concomitant]
  7. VYTORIN [Concomitant]
  8. TOPROL-XL [Concomitant]
  9. ACETYLSALICYLIC ACID [Concomitant]
  10. WARFARIN [Concomitant]

REACTIONS (2)
  - DIARRHOEA [None]
  - ELECTROCARDIOGRAM QT PROLONGED [None]
